FAERS Safety Report 15095011 (Version 1)
Quarter: 2018Q3

REPORT INFORMATION
  Report Type: Report from Study
  Country: US (occurrence: US)
  Receive Date: 20180701
  Receipt Date: 20180701
  Transmission Date: 20181010
  Serious: No
  Sender: FDA-Public Use
  Company Number: PHEH2018US026868

PATIENT
  Age: 4 Year
  Sex: Female

DRUGS (1)
  1. OMNITROP [Suspect]
     Active Substance: SOMATROPIN
     Indication: TURNER^S SYNDROME
     Dosage: 0.5 MG, QD
     Route: 058
     Dates: start: 201804

REACTIONS (2)
  - Incorrect dose administered by device [Unknown]
  - Wrong device used [Unknown]

NARRATIVE: CASE EVENT DATE: 201804
